FAERS Safety Report 5932269-6 (Version None)
Quarter: 2008Q4

REPORT INFORMATION
  Report Type: 
  Country: None (occurrence: None)
  Receive Date: 20081023
  Receipt Date: 20081014
  Transmission Date: 20090506
  Serious: Yes (Hospitalization)
  Sender: FDA-Public Use
  Company Number: 2008AP002782

PATIENT
  Age: 61 Year
  Sex: Female

DRUGS (8)
  1. TIMONIL - SLOW RELEASE (CARBAMAZEPINE) [Suspect]
     Indication: EPILEPSY
     Dosage: 450 MG; BID PO
     Route: 048
     Dates: start: 20080801, end: 20080915
  2. ATENOLOL [Concomitant]
  3. ESTRADIOL VALERATE (ESTRADIOL VALERATE) [Concomitant]
  4. CITALOPRAM HYDROBROMIDE [Concomitant]
  5. MIRTAZAPINE [Concomitant]
  6. SERETIDE MITE (SERETIDE MITE) [Concomitant]
  7. HYDROCHLOROTHIAZIDE [Concomitant]
  8. AMILORIDE HYDROCHLORIDE (AMILORIDE HYDROCHLORIDE) [Concomitant]

REACTIONS (11)
  - ALANINE AMINOTRANSFERASE INCREASED [None]
  - ASPARTATE AMINOTRANSFERASE INCREASED [None]
  - BLOOD ALKALINE PHOSPHATASE INCREASED [None]
  - CONDITION AGGRAVATED [None]
  - GAMMA-GLUTAMYLTRANSFERASE INCREASED [None]
  - HEADACHE [None]
  - HYPONATRAEMIA [None]
  - NAUSEA [None]
  - NECK PAIN [None]
  - PYREXIA [None]
  - WHITE BLOOD CELL COUNT INCREASED [None]
